FAERS Safety Report 10659762 (Version 1)
Quarter: 2014Q4

REPORT INFORMATION
  Report Type: Spontaneous
  Country: FR (occurrence: FR)
  Receive Date: 20141217
  Receipt Date: 20141217
  Transmission Date: 20150529
  Serious: Yes (Hospitalization)
  Sender: FDA-Public Use
  Company Number: FR-PFIZER INC-2014344632

PATIENT
  Age: 58 Year
  Sex: Female
  Weight: 65 kg

DRUGS (14)
  1. TAHOR [Concomitant]
     Active Substance: ATORVASTATIN CALCIUM
     Dosage: 40 MG, 1X/DAY
     Route: 048
  2. GENTAMICINE [Suspect]
     Active Substance: GENTAMICIN
     Indication: INFECTION
     Dosage: UNK
     Route: 048
     Dates: start: 201404, end: 201404
  3. PLAVIX [Concomitant]
     Active Substance: CLOPIDOGREL BISULFATE
     Dosage: 75 MG, DAILY
     Route: 048
  4. LANTUS [Concomitant]
     Active Substance: INSULIN GLARGINE
     Dosage: 26 IU, DAILY
     Route: 058
  5. KALEORID [Concomitant]
     Active Substance: POTASSIUM CHLORIDE
  6. VANCOMYCIN [Suspect]
     Active Substance: VANCOMYCIN
     Indication: INFECTION
     Dosage: UNK
     Route: 048
     Dates: start: 201404, end: 201404
  7. PREVISCAN [Suspect]
     Active Substance: FLUINDIONE
  8. LASILIX [Suspect]
     Active Substance: FUROSEMIDE
  9. ESIDREX [Suspect]
     Active Substance: HYDROCHLOROTHIAZIDE
  10. CALCIPARINE [Concomitant]
     Active Substance: HEPARIN CALCIUM
     Dosage: 0.35 ML, 3X/DAY
     Route: 058
  11. COVERSYL [Suspect]
     Active Substance: PERINDOPRIL
  12. KREDEX [Suspect]
     Active Substance: CARVEDILOL
  13. INSPRA [Suspect]
     Active Substance: EPLERENONE
  14. HUMALOG [Concomitant]
     Active Substance: INSULIN LISPRO
     Dosage: 18 IU, DAILY

REACTIONS (2)
  - Renal tubular necrosis [Recovered/Resolved]
  - Acute kidney injury [Recovered/Resolved]

NARRATIVE: CASE EVENT DATE: 201404
